FAERS Safety Report 9503733 (Version 1)
Quarter: 2013Q1

REPORT INFORMATION
  Report Type: Spontaneous
  Country: US (occurrence: None)
  Receive Date: 20130107
  Receipt Date: 20130107
  Transmission Date: 20140127
  Serious: No
  Sender: FDA-Public Use
  Company Number: PHEH2012US019982

PATIENT
  Age: 44 Year
  Sex: Female
  Weight: 92.5 kg

DRUGS (6)
  1. GILENYA (FINGOLIMOD) CAPSULE, 0.5MG [Suspect]
     Indication: MULTIPLE SCLEROSIS
     Route: 048
     Dates: start: 20121009
  2. PROZAC (FLUOXETINE HYDROCHLORIDE) [Concomitant]
  3. WELLBUTRIN (BUPROPION HYDROCHLORIDE) [Concomitant]
  4. KLONOPIN (CLONAZEPAM) (TABLETS) [Concomitant]
  5. RITALIN (METHYLPHENIDATE HYDROCHLORIDE) [Concomitant]
  6. IBUPROFEN (IBUPROFEN) [Concomitant]

REACTIONS (3)
  - Erythema [None]
  - Flushing [None]
  - Vision blurred [None]
